FAERS Safety Report 6875956-8 (Version None)
Quarter: 2010Q3

REPORT INFORMATION
  Report Type: 
  Country: None (occurrence: None)
  Receive Date: 20100723
  Receipt Date: 20100715
  Transmission Date: 20110219
  Serious: Yes (Disabling)
  Sender: FDA-Public Use
  Company Number: OSCN-NO-0706S-0267

PATIENT
  Age: 53 Year
  Sex: Male
  Weight: 57 kg

DRUGS (25)
  1. OMNISCAN [Suspect]
     Indication: ACOUSTIC NEUROMA
     Dosage: 11.4 ML, SINGE DOSE, I.V., 11.4 ML (0.2 ML/KG), SINGLE DOSE,I.V., SINGLE DOSE, I.V.
     Route: 042
     Dates: start: 20010125, end: 20010125
  2. OMNISCAN [Suspect]
     Indication: HYDROCEPHALUS
     Dosage: 11.4 ML, SINGE DOSE, I.V., 11.4 ML (0.2 ML/KG), SINGLE DOSE,I.V., SINGLE DOSE, I.V.
     Route: 042
     Dates: start: 20010125, end: 20010125
  3. OMNISCAN [Suspect]
     Indication: ACOUSTIC NEUROMA
     Dosage: 11.4 ML, SINGE DOSE, I.V., 11.4 ML (0.2 ML/KG), SINGLE DOSE,I.V., SINGLE DOSE, I.V.
     Route: 042
     Dates: start: 20010712, end: 20010712
  4. OMNISCAN [Suspect]
     Indication: HYDROCEPHALUS
     Dosage: 11.4 ML, SINGE DOSE, I.V., 11.4 ML (0.2 ML/KG), SINGLE DOSE,I.V., SINGLE DOSE, I.V.
     Route: 042
     Dates: start: 20010712, end: 20010712
  5. OMNISCAN [Suspect]
     Indication: ACOUSTIC NEUROMA
     Dosage: 11.4 ML, SINGE DOSE, I.V., 11.4 ML (0.2 ML/KG), SINGLE DOSE,I.V., SINGLE DOSE, I.V.
     Route: 042
     Dates: start: 20010808, end: 20010808
  6. OMNISCAN [Suspect]
     Indication: HYDROCEPHALUS
     Dosage: 11.4 ML, SINGE DOSE, I.V., 11.4 ML (0.2 ML/KG), SINGLE DOSE,I.V., SINGLE DOSE, I.V.
     Route: 042
     Dates: start: 20010808, end: 20010808
  7. OMNISCAN [Suspect]
     Indication: ACOUSTIC NEUROMA
     Dosage: 11.4 ML, SINGE DOSE, I.V., 11.4 ML (0.2 ML/KG), SINGLE DOSE,I.V., SINGLE DOSE, I.V.
     Route: 042
     Dates: start: 20030402, end: 20030402
  8. OMNISCAN [Suspect]
     Indication: HYDROCEPHALUS
     Dosage: 11.4 ML, SINGE DOSE, I.V., 11.4 ML (0.2 ML/KG), SINGLE DOSE,I.V., SINGLE DOSE, I.V.
     Route: 042
     Dates: start: 20030402, end: 20030402
  9. OMNISCAN [Suspect]
     Indication: ACOUSTIC NEUROMA
     Dosage: 11.4 ML, SINGE DOSE, I.V., 11.4 ML (0.2 ML/KG), SINGLE DOSE,I.V., SINGLE DOSE, I.V.
     Route: 042
     Dates: start: 20031119, end: 20031119
  10. OMNISCAN [Suspect]
     Indication: HYDROCEPHALUS
     Dosage: 11.4 ML, SINGE DOSE, I.V., 11.4 ML (0.2 ML/KG), SINGLE DOSE,I.V., SINGLE DOSE, I.V.
     Route: 042
     Dates: start: 20031119, end: 20031119
  11. OMNISCAN [Suspect]
     Indication: ACOUSTIC NEUROMA
     Dosage: 11.4 ML, SINGE DOSE, I.V., 11.4 ML (0.2 ML/KG), SINGLE DOSE,I.V., SINGLE DOSE, I.V.
     Route: 042
     Dates: start: 20040519, end: 20040519
  12. OMNISCAN [Suspect]
     Indication: HYDROCEPHALUS
     Dosage: 11.4 ML, SINGE DOSE, I.V., 11.4 ML (0.2 ML/KG), SINGLE DOSE,I.V., SINGLE DOSE, I.V.
     Route: 042
     Dates: start: 20040519, end: 20040519
  13. OMNISCAN [Suspect]
     Indication: ACOUSTIC NEUROMA
     Dosage: 11.4 ML, SINGE DOSE, I.V., 11.4 ML (0.2 ML/KG), SINGLE DOSE,I.V., SINGLE DOSE, I.V.
     Route: 042
     Dates: start: 20041117, end: 20041117
  14. OMNISCAN [Suspect]
     Indication: HYDROCEPHALUS
     Dosage: 11.4 ML, SINGE DOSE, I.V., 11.4 ML (0.2 ML/KG), SINGLE DOSE,I.V., SINGLE DOSE, I.V.
     Route: 042
     Dates: start: 20041117, end: 20041117
  15. OMNISCAN [Suspect]
     Indication: ACOUSTIC NEUROMA
     Dosage: 11.4 ML, SINGE DOSE, I.V., 11.4 ML (0.2 ML/KG), SINGLE DOSE,I.V., SINGLE DOSE, I.V.
     Route: 042
     Dates: start: 20050225, end: 20050225
  16. OMNISCAN [Suspect]
     Indication: HYDROCEPHALUS
     Dosage: 11.4 ML, SINGE DOSE, I.V., 11.4 ML (0.2 ML/KG), SINGLE DOSE,I.V., SINGLE DOSE, I.V.
     Route: 042
     Dates: start: 20050225, end: 20050225
  17. LANSOPRAZOLE [Concomitant]
  18. MARZULENE-S (LEVOGLUTAMIDE W/SODIUM GUALENATE) [Concomitant]
  19. SODIUM CALCIUM [Concomitant]
  20. ISOSORBIDE DINITHATE (FRANDOL) [Concomitant]
  21. ETIZOLAM (DEPAS) [Concomitant]
  22. ETHYL ICOSAPENATATE (EPADEL S) [Concomitant]
  23. DILTIAZEM HYDROCHLORIDE (HERBESSER R) [Concomitant]
  24. WARFARIN [Concomitant]
  25. PROHANCE [Concomitant]

REACTIONS (2)
  - HAEMODIALYSIS [None]
  - NEPHROGENIC SYSTEMIC FIBROSIS [None]
